FAERS Safety Report 9979727 (Version 1)
Quarter: 2014Q1

REPORT INFORMATION
  Report Type: Report from Study
  Country: US (occurrence: US)
  Receive Date: 20140306
  Receipt Date: 20140306
  Transmission Date: 20141002
  Serious: No
  Sender: FDA-Public Use
  Company Number: US-ABBVIE-13P-163-1170498-00

PATIENT
  Sex: Female

DRUGS (11)
  1. HUMIRA [Suspect]
     Indication: PSORIASIS
     Dates: start: 20131107, end: 20131107
  2. HUMIRA [Suspect]
     Dates: start: 20131114
  3. GABAPENTIN [Concomitant]
     Indication: PAIN
  4. XARELTO [Concomitant]
     Indication: ANTICOAGULANT THERAPY
  5. PLAQUENIL [Concomitant]
     Indication: SYSTEMIC LUPUS ERYTHEMATOSUS
  6. SINGULAIR [Concomitant]
     Indication: ASTHMA
  7. DIGOXIN [Concomitant]
     Indication: HEART RATE IRREGULAR
  8. PREDNISONE [Concomitant]
     Indication: SYSTEMIC LUPUS ERYTHEMATOSUS
  9. LISINOPRIL [Concomitant]
     Indication: HYPERTENSION
  10. SPIRIVA [Concomitant]
     Indication: ASTHMA
     Route: 055
  11. VITAMINS AND SUPPLEMENTS [Concomitant]
     Indication: PRODUCT USED FOR UNKNOWN INDICATION

REACTIONS (1)
  - Psoriasis [Not Recovered/Not Resolved]
